FAERS Safety Report 9436029 (Version 1)
Quarter: 2013Q3

REPORT INFORMATION
  Report Type: Report from Study
  Country: DE (occurrence: DE)
  Receive Date: 20130801
  Receipt Date: 20130801
  Transmission Date: 20140515
  Serious: Yes (Hospitalization)
  Sender: FDA-Public Use
  Company Number: DE-ABBOTT-13P-062-1124576-00

PATIENT
  Age: 56 Year
  Sex: Male
  Weight: 130 kg

DRUGS (2)
  1. HUMIRA [Suspect]
     Indication: CROHN^S DISEASE
     Route: 058
     Dates: start: 20110829, end: 20111215
  2. SYSTEMIC STEROIDS [Concomitant]
     Indication: PRODUCT USED FOR UNKNOWN INDICATION
     Dosage: 12 MILLIGRAM

REACTIONS (6)
  - Musculoskeletal pain [Recovered/Resolved]
  - Drug effect decreased [Unknown]
  - Candida infection [Not Recovered/Not Resolved]
  - Folliculitis [Not Recovered/Not Resolved]
  - Intertrigo [Not Recovered/Not Resolved]
  - Disturbance in attention [Not Recovered/Not Resolved]
